FAERS Safety Report 6804230-0 (Version None)
Quarter: 2010Q2

REPORT INFORMATION
  Report Type: 
  Country: None (occurrence: None)
  Receive Date: 20100628
  Receipt Date: 20070216
  Transmission Date: 20101027
  Serious: No
  Sender: FDA-Public Use
  Company Number: US-PFIZER INC-2007013059

PATIENT
  Sex: Male

DRUGS (5)
  1. CADUET [Suspect]
  2. METOPROLOL [Suspect]
  3. LIPITOR [Suspect]
  4. NORVASC [Suspect]
  5. TOPROL-XL [Suspect]

REACTIONS (1)
  - TINNITUS [None]
